FAERS Safety Report 9285808 (Version 2)
Quarter: 2013Q2

REPORT INFORMATION
  Report Type: Spontaneous
  Country: US (occurrence: US)
  Receive Date: 20130513
  Receipt Date: 20130604
  Transmission Date: 20140414
  Serious: No
  Sender: FDA-Public Use
  Company Number: US-PFIZER INC-2013146860

PATIENT
  Age: 42 Year
  Sex: Female

DRUGS (1)
  1. NICOTROL NASAL SPRAY [Suspect]
     Indication: SMOKING CESSATION THERAPY
     Dosage: UNK, 8 TIMES DAILY
     Route: 045
     Dates: start: 20130510

REACTIONS (2)
  - Product quality issue [Unknown]
  - Paraesthesia [Unknown]
